FAERS Safety Report 11308189 (Version 2)
Quarter: 2016Q3

REPORT INFORMATION
  Report Type: Spontaneous
  Country: NL (occurrence: NL)
  Receive Date: 20150724
  Receipt Date: 20160927
  Transmission Date: 20161109
  Serious: Yes (Other)
  Sender: FDA-Public Use
  Company Number: NL-AUROBINDO-AUR-APL-2015-06358

PATIENT
  Sex: Male

DRUGS (1)
  1. MIRTAZAPINE AUROBINDO FILM-COATED TABLETS 15MG [Suspect]
     Active Substance: MIRTAZAPINE
     Indication: POST-TRAUMATIC STRESS DISORDER
     Dosage: 1/4 OR 1/2 TABLET OF 15 MG PER DAY
     Route: 048

REACTIONS (15)
  - Agitation [Unknown]
  - Increased appetite [Unknown]
  - Nightmare [Unknown]
  - Somnolence [Unknown]
  - Abnormal dreams [Unknown]
  - Arthralgia [Unknown]
  - Fatigue [Unknown]
  - Anxiety [Unknown]
  - Dry mouth [Unknown]
  - Suicidal ideation [Unknown]
  - Muscle tightness [Unknown]
  - Weight increased [Unknown]
  - Restless legs syndrome [Unknown]
  - Speech disorder [Unknown]
  - Back pain [Unknown]
